FAERS Safety Report 19974959 (Version 1)
Quarter: 2021Q4

REPORT INFORMATION
  Report Type: Spontaneous
  Country: US (occurrence: US)
  Receive Date: 20211020
  Receipt Date: 20211020
  Transmission Date: 20220304
  Serious: No
  Sender: FDA-Public Use
  Company Number: US-ALLERGAN-2044510US

PATIENT
  Age: 66 Year
  Sex: Male

DRUGS (3)
  1. LINZESS [Suspect]
     Active Substance: LINACLOTIDE
     Indication: Constipation
     Dosage: 290 ?G EVERY 3 DAYS
     Route: 048
     Dates: start: 20201122
  2. LINZESS [Suspect]
     Active Substance: LINACLOTIDE
     Dosage: 290 ?G, QAM
     Route: 048
     Dates: start: 20201102
  3. HYDROCODONE [Concomitant]
     Active Substance: HYDROCODONE
     Indication: Pain

REACTIONS (6)
  - Off label use [Unknown]
  - Depressed level of consciousness [Recovered/Resolved]
  - Feeling of body temperature change [Recovered/Resolved]
  - Dehydration [Recovered/Resolved]
  - Diarrhoea [Unknown]
  - Drug ineffective [Unknown]

NARRATIVE: CASE EVENT DATE: 20201101
